FAERS Safety Report 5226503-8 (Version None)
Quarter: 2007Q1

REPORT INFORMATION
  Report Type: 
  Country: None (occurrence: None)
  Receive Date: 20070201
  Receipt Date: 20070123
  Transmission Date: 20070707
  Serious: Yes (Disabling, Other)
  Sender: FDA-Public Use
  Company Number: AU-PFIZER INC-2006154970

PATIENT
  Sex: Female
  Weight: 90 kg

DRUGS (3)
  1. DILANTIN [Suspect]
     Indication: EPILEPSY
  2. PHENOBARBITONE [Concomitant]
     Indication: EPILEPSY
     Route: 048
  3. PREDNISOLONE [Concomitant]
     Indication: POLYARTHRITIS
     Route: 048

REACTIONS (2)
  - CONVULSION [None]
  - PHARMACEUTICAL PRODUCT COMPLAINT [None]
